FAERS Safety Report 18860246 (Version 1)
Quarter: 2021Q1

REPORT INFORMATION
  Report Type: Spontaneous
  Country: US (occurrence: US)
  Receive Date: 20210208
  Receipt Date: 20210208
  Transmission Date: 20210420
  Serious: No
  Sender: FDA-Public Use
  Company Number: US-MIKART, LLC-2106459

PATIENT

DRUGS (8)
  1. LISINOPRIL. [Concomitant]
     Active Substance: LISINOPRIL
  2. CELEBREX [Concomitant]
     Active Substance: CELECOXIB
     Route: 048
  3. CODEINE [Concomitant]
     Active Substance: CODEINE
  4. ASPIRIN. [Concomitant]
     Active Substance: ASPIRIN
  5. LEVAQUIN [Concomitant]
     Active Substance: LEVOFLOXACIN
  6. NITROGLYCERIN. [Concomitant]
     Active Substance: NITROGLYCERIN
     Route: 060
  7. PENICILLIN [Concomitant]
     Active Substance: PENICILLIN
  8. HYDROCODONE BITARTRATE AND ACETAMINOPHEN [Suspect]
     Active Substance: ACETAMINOPHEN\HYDROCODONE BITARTRATE
     Route: 048

REACTIONS (2)
  - Urticaria [Unknown]
  - Dyspnoea [Unknown]

NARRATIVE: CASE EVENT DATE: 20180618
